FAERS Safety Report 20070791 (Version 1)
Quarter: 2021Q4

REPORT INFORMATION
  Report Type: Spontaneous
  Country: US (occurrence: None)
  Receive Date: 20211115
  Receipt Date: 20211115
  Transmission Date: 20220303
  Serious: No
  Sender: FDA-Public Use
  Company Number: None

PATIENT
  Sex: Male
  Weight: 83 kg

DRUGS (17)
  1. CAPECITABINE [Suspect]
     Active Substance: CAPECITABINE
     Indication: Rectal cancer
     Dosage: OTHER FREQUENCY : BID 14/21 DAYS;?
     Route: 048
     Dates: start: 20190515
  2. CAPECITABINE [Suspect]
     Active Substance: CAPECITABINE
     Dosage: OTHER FREQUENCY : BID FOR 14/21DAYS;?
     Route: 048
     Dates: start: 20190515
  3. ASPIRIN [Concomitant]
     Active Substance: ASPIRIN
  4. ATENOLOL [Concomitant]
     Active Substance: ATENOLOL
  5. CLOPIDOGREL [Concomitant]
     Active Substance: CLOPIDOGREL BISULFATE
  6. CYANOCOBALAMIN [Concomitant]
     Active Substance: CYANOCOBALAMIN
  7. FUROSEMIDE [Concomitant]
     Active Substance: FUROSEMIDE
  8. GABAPENTIN [Concomitant]
     Active Substance: GABAPENTIN
  9. ICAR-C PLUS [Concomitant]
  10. ISOSORBIDE MONONITRATE [Concomitant]
     Active Substance: ISOSORBIDE MONONITRATE
  11. LOVASTATIN [Concomitant]
     Active Substance: LOVASTATIN
  12. VITAMINS [Concomitant]
     Active Substance: VITAMINS
  13. NIACIN [Concomitant]
     Active Substance: NIACIN
  14. NITROGLYCERIN [Concomitant]
     Active Substance: NITROGLYCERIN
  15. PLAVIX [Concomitant]
     Active Substance: CLOPIDOGREL BISULFATE
  16. POTASSIUM CHLORIDE [Concomitant]
     Active Substance: POTASSIUM CHLORIDE
  17. RANEXA [Concomitant]
     Active Substance: RANOLAZINE

REACTIONS (1)
  - Nasopharyngitis [None]
